FAERS Safety Report 9781108 (Version 1)
Quarter: 2013Q4

REPORT INFORMATION
  Report Type: Spontaneous
  Country: US (occurrence: None)
  Receive Date: 20131223
  Receipt Date: 20131223
  Transmission Date: 20140711
  Serious: Yes (Life-Threatening, Disabling)
  Sender: FDA-Public Use
  Company Number: None

PATIENT
  Age: 45 Year
  Sex: Female
  Weight: 57.15 kg

DRUGS (2)
  1. ATIVAN [Suspect]
     Indication: INSOMNIA
     Route: 048
     Dates: start: 20130727, end: 20131220
  2. ATIVAN [Suspect]
     Indication: ANXIETY
     Route: 048
     Dates: start: 20130727, end: 20131220

REACTIONS (10)
  - Withdrawal syndrome [None]
  - Paradoxical drug reaction [None]
  - Drug abuser [None]
  - Dizziness [None]
  - Disorientation [None]
  - Confusional state [None]
  - Paranoia [None]
  - Anxiety [None]
  - Depression [None]
  - Suicidal behaviour [None]
